FAERS Safety Report 8776478 (Version 1)
Quarter: 2012Q4

REPORT INFORMATION
  Report Type: 
  Country: US (occurrence: US)
  Receive Date: 20120910
  Receipt Date: 20120910
  Transmission Date: 20130627
  Serious: Yes (Hospitalization)
  Sender: FDA-Public Use
  Company Number: PHHY2012US077211

PATIENT
  Age: 59 Year
  Sex: Male

DRUGS (3)
  1. FENTANYL [Suspect]
  2. ALPRAZOLAM [Suspect]
  3. ALCOHOL [Suspect]

REACTIONS (14)
  - Leukoencephalopathy [Recovered/Resolved]
  - Unresponsive to stimuli [Recovered/Resolved]
  - Agitation [Recovered/Resolved]
  - Memory impairment [Recovered/Resolved]
  - Speech disorder [Recovered/Resolved]
  - Cognitive disorder [Recovered/Resolved]
  - Pneumonia aspiration [Recovered/Resolved]
  - Myocardial infarction [Recovered/Resolved]
  - Rhabdomyolysis [Recovered/Resolved]
  - Renal failure acute [Recovered/Resolved]
  - Hypoxia [Recovered/Resolved]
  - Respiratory acidosis [Recovered/Resolved]
  - Respiratory rate decreased [Recovered/Resolved]
  - Overdose [Unknown]
